FAERS Safety Report 21439197 (Version 1)
Quarter: 2022Q4

REPORT INFORMATION
  Report Type: Report from Study
  Country: US (occurrence: US)
  Receive Date: 20221011
  Receipt Date: 20221011
  Transmission Date: 20230113
  Serious: Yes (Hospitalization)
  Sender: FDA-Public Use
  Company Number: US-TAKEDA-2022TUS071920

PATIENT
  Sex: Male

DRUGS (4)
  1. TEDUGLUTIDE [Suspect]
     Active Substance: TEDUGLUTIDE
     Indication: Colon cancer
     Dosage: 3 MILLIGRAM, QD
     Route: 058
     Dates: start: 20220712
  2. TEDUGLUTIDE [Suspect]
     Active Substance: TEDUGLUTIDE
     Indication: Colon cancer
     Dosage: 3 MILLIGRAM, QD
     Route: 058
     Dates: start: 20220712
  3. TEDUGLUTIDE [Suspect]
     Active Substance: TEDUGLUTIDE
     Indication: Colon cancer
     Dosage: 3 MILLIGRAM, QD
     Route: 058
     Dates: start: 20220712
  4. TEDUGLUTIDE [Suspect]
     Active Substance: TEDUGLUTIDE
     Indication: Colon cancer
     Dosage: 3 MILLIGRAM, QD
     Route: 058
     Dates: start: 20220712

REACTIONS (2)
  - Hospitalisation [Unknown]
  - Off label use [Unknown]
